FAERS Safety Report 5573789-6 (Version None)
Quarter: 2007Q4

REPORT INFORMATION
  Report Type: 
  Country: None (occurrence: None)
  Receive Date: 20071226
  Receipt Date: 20071218
  Transmission Date: 20080405
  Serious: Yes (Other)
  Sender: FDA-Public Use
  Company Number: RO-ASTRAZENECA-2007SE06689

PATIENT
  Age: 45 Year
  Sex: Male

DRUGS (1)
  1. MARCAINE [Suspect]
     Route: 037
     Dates: start: 20071104

REACTIONS (2)
  - DRUG EFFECT DECREASED [None]
  - DRUG INEFFECTIVE [None]
